FAERS Safety Report 6862698-8 (Version None)
Quarter: 2010Q3

REPORT INFORMATION
  Report Type: 
  Country: None (occurrence: None)
  Receive Date: 20100721
  Receipt Date: 20100709
  Transmission Date: 20110219
  Serious: Yes (Hospitalization, Other)
  Sender: FDA-Public Use
  Company Number: US-ROCHE-702752

PATIENT
  Age: 65 Year
  Sex: Female

DRUGS (15)
  1. BEVACIZUMAB [Suspect]
     Indication: OVARIAN CANCER
     Dosage: CYCLE 2.
     Route: 042
     Dates: start: 20100423, end: 20100423
  2. BEVACIZUMAB [Suspect]
     Dosage: DOSAGE: 870, CYCLE: 4
     Route: 042
     Dates: start: 20100404, end: 20100608
  3. PEMETREXED [Suspect]
     Indication: OVARIAN CANCER
     Dosage: CYCLE 2.
     Route: 042
     Dates: start: 20100423, end: 20100423
  4. PEMETREXED [Suspect]
     Dosage: DOSAGE: 1057, CYCLE: 4.
     Route: 042
     Dates: start: 20100402, end: 20100608
  5. DYAZIDE [Concomitant]
     Route: 048
  6. ENALAPRIL MALEATE [Concomitant]
     Route: 048
  7. POTASSIUM CHLORIDE [Concomitant]
     Route: 048
  8. METFORMIN [Concomitant]
  9. METOPROLOL [Concomitant]
     Dosage: FREQUENCY: QHS.
  10. MG OXIDE [Concomitant]
  11. MG OXIDE [Concomitant]
     Dosage: FREQUENCY: DAILY.
  12. LIPITOR [Concomitant]
     Dosage: FREQUENCY: QHS.
  13. ZYRTEC [Concomitant]
  14. AMBIEN [Concomitant]
     Dosage: FREQUENCY: QHS.
  15. METOPROLOL [Concomitant]
     Dosage: METOPROLOL HCL

REACTIONS (13)
  - ABDOMINAL PAIN [None]
  - ANAEMIA [None]
  - BLOOD CALCIUM [None]
  - BLOOD POTASSIUM [None]
  - DEHYDRATION [None]
  - DISEASE PROGRESSION [None]
  - HAEMOGLOBIN [None]
  - INTESTINAL OBSTRUCTION [None]
  - NAUSEA [None]
  - NEUTROPHIL COUNT [None]
  - PLATELET COUNT [None]
  - VOMITING [None]
  - WHITE BLOOD CELL COUNT [None]
